FAERS Safety Report 13939582 (Version 1)
Quarter: 2017Q3

REPORT INFORMATION
  Report Type: Spontaneous
  Country: US (occurrence: None)
  Receive Date: 20170906
  Receipt Date: 20170906
  Transmission Date: 20171127
  Serious: No
  Sender: FDA-Public Use
  Company Number: None

PATIENT
  Age: 57 Year
  Sex: Female

DRUGS (1)
  1. LETAIRIS [Suspect]
     Active Substance: AMBRISENTAN
     Indication: PULMONARY ARTERIAL HYPERTENSION
     Route: 048
     Dates: start: 20150724

REACTIONS (5)
  - Leukocytosis [None]
  - Feeling hot [None]
  - Erythema [None]
  - Rash [None]
  - Cellulitis [None]

NARRATIVE: CASE EVENT DATE: 20170806
